FAERS Safety Report 18383412 (Version 1)
Quarter: 2020Q4

REPORT INFORMATION
  Report Type: Spontaneous
  Country: GB (occurrence: GB)
  Receive Date: 20201014
  Receipt Date: 20201014
  Transmission Date: 20210114
  Serious: Yes (Other)
  Sender: FDA-Public Use
  Company Number: GB-JNJFOC-20201017552

PATIENT
  Age: 22 Year
  Sex: Male

DRUGS (3)
  1. XARELTO [Suspect]
     Active Substance: RIVAROXABAN
     Indication: PRODUCT USED FOR UNKNOWN INDICATION
     Dosage: (LONGTERM)
     Route: 048
     Dates: start: 202001
  2. GABAPENTIN. [Concomitant]
     Active Substance: GABAPENTIN
     Dosage: 1200 MG, QD
     Route: 048
     Dates: start: 20200916
  3. DEVILS CLAW [HARPAGOPHYTUM PROCUMBENS] [Concomitant]

REACTIONS (2)
  - Haemorrhage [Recovered/Resolved with Sequelae]
  - Rash [Recovered/Resolved with Sequelae]
